FAERS Safety Report 4927854-4 (Version None)
Quarter: 2006Q1

REPORT INFORMATION
  Report Type: 
  Country: None (occurrence: None)
  Receive Date: 20060228
  Receipt Date: 20060110
  Transmission Date: 20060701
  Serious: Yes (Life-Threatening, Hospitalization, Disabling, Congenital Anomaly, Other)
  Sender: FDA-Public Use
  Company Number: US-GLAXOSMITHKLINE-A0588579A

PATIENT

DRUGS (1)
  1. PAXIL CR [Suspect]
     Indication: DEPRESSION
     Dates: start: 20050805

REACTIONS (5)
  - CONGENITAL ANOMALY [None]
  - DRUG EXPOSURE DURING PREGNANCY [None]
  - FALLOT'S TETRALOGY [None]
  - HYPOXIA [None]
  - PNEUMONIA [None]
